FAERS Safety Report 4962997-0 (Version None)
Quarter: 2006Q1

REPORT INFORMATION
  Report Type: 
  Country: None (occurrence: None)
  Receive Date: 20060331
  Receipt Date: 20060328
  Transmission Date: 20060701
  Serious: Yes (Hospitalization)
  Sender: FDA-Public Use
  Company Number: S06-USA-00644-01

PATIENT
  Age: 57 Year
  Sex: Female

DRUGS (13)
  1. LEXAPRO [Suspect]
     Indication: ANXIETY
     Dosage: 10 MG QD PO
     Route: 048
     Dates: start: 20060217, end: 20060219
  2. LEXAPRO [Suspect]
     Indication: DEPRESSION
     Dosage: 10 MG QD PO
     Route: 048
     Dates: start: 20060217, end: 20060219
  3. PERCOCET [Concomitant]
  4. TRAMADOL [Concomitant]
  5. CARISOPRODOL [Concomitant]
  6. CLORAZEPATE DIPOTASSIUM [Concomitant]
  7. PREMARIN [Concomitant]
  8. CLARINEX [Concomitant]
  9. SINGULAIR [Concomitant]
  10. ZANTAC [Concomitant]
  11. FLOVENT [Concomitant]
  12. ALBUTEROL [Concomitant]
  13. FINACEA [Concomitant]

REACTIONS (6)
  - ANOREXIA [None]
  - CONFUSIONAL STATE [None]
  - FATIGUE [None]
  - FEELING COLD [None]
  - NAUSEA [None]
  - SOMNOLENCE [None]
